FAERS Safety Report 7957230-1 (Version None)
Quarter: 2011Q4

REPORT INFORMATION
  Report Type: 
  Country: None (occurrence: None)
  Receive Date: 20111205
  Receipt Date: 20111128
  Transmission Date: 20120403
  Serious: Yes (Hospitalization)
  Sender: FDA-Public Use
  Company Number: PL-ABBOTT-11P-129-0878729-00

PATIENT
  Age: 39 Year
  Sex: Female

DRUGS (5)
  1. LOPINAVIR/RITONAVIR [Interacting]
     Indication: HIV INFECTION
     Dates: start: 20060601, end: 20071001
  2. ACENOCOUMAROL [Suspect]
     Indication: TAKAYASU'S ARTERITIS
  3. ACENOCOUMAROL [Suspect]
  4. EMTRICITABINE [Concomitant]
     Indication: HIV INFECTION
  5. TENOFOVIR [Concomitant]
     Indication: HIV INFECTION

REACTIONS (2)
  - INTERNATIONAL NORMALISED RATIO DECREASED [None]
  - DRUG INTERACTION [None]
